FAERS Safety Report 16005075 (Version 1)
Quarter: 2019Q1

REPORT INFORMATION
  Report Type: Spontaneous
  Country: US (occurrence: US)
  Receive Date: 20190226
  Receipt Date: 20190226
  Transmission Date: 20190418
  Serious: No
  Sender: FDA-Public Use
  Company Number: US-TEVA-2019-US-1013773

PATIENT
  Age: 70 Year
  Sex: Female

DRUGS (6)
  1. CLONAZEPAM. [Suspect]
     Active Substance: CLONAZEPAM
     Indication: INSOMNIA
     Dosage: TAPERING OF CLONAZEPAM FROM 4MG TO 0.5MG
     Route: 065
  2. HYDROXOCOBALAMIN [Concomitant]
     Active Substance: HYDROXOCOBALAMIN
     Indication: SUPPLEMENTATION THERAPY
     Route: 065
  3. CLONAZEPAM. [Suspect]
     Active Substance: CLONAZEPAM
     Indication: INSOMNIA
     Dosage: TITRATED UP TO A DOSE OF 3-4 MG
     Route: 065
  4. CLONAZEPAM. [Suspect]
     Active Substance: CLONAZEPAM
     Route: 065
  5. L-GLUTATHIONE [Concomitant]
     Active Substance: GLUTATHIONE
     Indication: SUPPLEMENTATION THERAPY
     Route: 065
  6. UBIQUINOL [Concomitant]
     Active Substance: UBIQUINOL
     Indication: SUPPLEMENTATION THERAPY
     Route: 065

REACTIONS (5)
  - Disturbance in attention [Recovering/Resolving]
  - Withdrawal syndrome [Recovering/Resolving]
  - Fatigue [Recovering/Resolving]
  - Paraesthesia [Recovering/Resolving]
  - Memory impairment [Recovering/Resolving]
